FAERS Safety Report 21259654 (Version 1)
Quarter: 2022Q3

REPORT INFORMATION
  Report Type: Spontaneous
  Country: JP (occurrence: JP)
  Receive Date: 20220826
  Receipt Date: 20220826
  Transmission Date: 20221026
  Serious: Yes (Hospitalization)
  Sender: FDA-Public Use
  Company Number: JP-DSJP-DSJ-2022-130781

PATIENT
  Age: 73 Year
  Sex: Male
  Weight: 48 kg

DRUGS (6)
  1. EDOXABAN TOSYLATE [Suspect]
     Active Substance: EDOXABAN TOSYLATE
     Indication: Atrial fibrillation
     Dosage: 30 MG, QD, AFTER BREAKFAST
     Route: 048
  2. VERAPAMIL HYDROCHLORIDE [Suspect]
     Active Substance: VERAPAMIL HYDROCHLORIDE
     Dosage: 40 MG, TID, AFTER MEAL
     Route: 048
  3. GARENOXACIN MESYLATE [Suspect]
     Active Substance: GARENOXACIN MESYLATE
     Dosage: 400 MG, QD, AFTER BREAKFAST
     Route: 048
  4. ROSUVASTATIN CALCIUM [Concomitant]
     Active Substance: ROSUVASTATIN CALCIUM
     Dosage: 2.5 MG, QD, AFTER BREAKFAST
     Route: 048
  5. IMIDAPRIL HYDROCHLORIDE [Concomitant]
     Active Substance: IMIDAPRIL HYDROCHLORIDE
     Dosage: 2.5 MG, QD, AFTER BREAKFAST
     Route: 048
  6. LANSOPRAZOLE [Concomitant]
     Active Substance: LANSOPRAZOLE
     Dosage: 15 MG, QD, AFTER BREAKFAST
     Route: 048

REACTIONS (2)
  - Pneumonia aspiration [Recovering/Resolving]
  - Bradycardia [Recovering/Resolving]
